FAERS Safety Report 17767537 (Version 1)
Quarter: 2020Q2

REPORT INFORMATION
  Report Type: Spontaneous
  Country: FI (occurrence: FI)
  Receive Date: 20200511
  Receipt Date: 20200511
  Transmission Date: 20200714
  Serious: No
  Sender: FDA-Public Use
  Company Number: FI-BEH-2020117112

PATIENT

DRUGS (1)
  1. FIBROGAMMIN [Suspect]
     Active Substance: FACTOR XIII CONCENTRATE (HUMAN)
     Route: 065

REACTIONS (3)
  - Device issue [Unknown]
  - Product preparation issue [Unknown]
  - No adverse event [Unknown]
